APPROVED DRUG PRODUCT: HYDROXYZINE PAMOATE
Active Ingredient: HYDROXYZINE PAMOATE
Strength: EQ 25MG HYDROCHLORIDE
Dosage Form/Route: CAPSULE;ORAL
Application: A081127 | Product #001
Applicant: BEXIMCO PHARMACEUTICALS USA INC
Approved: Jun 28, 1991 | RLD: No | RS: No | Type: DISCN